FAERS Safety Report 7902860-6 (Version None)
Quarter: 2011Q4

REPORT INFORMATION
  Report Type: 
  Country: None (occurrence: None)
  Receive Date: 20111107
  Receipt Date: 20111027
  Transmission Date: 20120403
  Serious: Yes (Other)
  Sender: FDA-Public Use
  Company Number: 1093927

PATIENT
  Age: 2 Year
  Sex: Female

DRUGS (1)
  1. VANCOMYCIN HYCHLORIDE [Suspect]
     Indication: PNEUMONIA PNEUMOCOCCAL
     Dosage: 40 MG/KG/DAY

REACTIONS (1)
  - LEUKOCYTOCLASTIC VASCULITIS [None]
